FAERS Safety Report 5929303-6 (Version None)
Quarter: 2008Q4

REPORT INFORMATION
  Report Type: 
  Country: None (occurrence: None)
  Receive Date: 20081024
  Receipt Date: 20081016
  Transmission Date: 20090506
  Serious: Yes (Hospitalization)
  Sender: FDA-Public Use
  Company Number: JP-ASTRAZENECA-2008AP08186

PATIENT
  Age: 47 Year
  Sex: Male

DRUGS (8)
  1. SEROQUEL [Suspect]
     Indication: DISINHIBITION
     Route: 048
     Dates: start: 20080913, end: 20080929
  2. SEROQUEL [Suspect]
     Indication: PORIOMANIA
     Route: 048
     Dates: start: 20080913, end: 20080929
  3. SEROQUEL [Suspect]
     Dosage: DOSE INCREASED
     Route: 048
     Dates: start: 20080930, end: 20081010
  4. SEROQUEL [Suspect]
     Dosage: DOSE INCREASED
     Route: 048
     Dates: start: 20080930, end: 20081010
  5. RISPERDAL [Concomitant]
     Route: 048
     Dates: start: 20080804
  6. ROHYPNOL [Concomitant]
     Route: 048
     Dates: start: 20080804
  7. TEGRETOL [Concomitant]
     Route: 048
     Dates: start: 20080906, end: 20080930
  8. MAGMITT [Concomitant]
     Route: 048
     Dates: start: 20080912

REACTIONS (1)
  - ERYTHEMA MULTIFORME [None]
